FAERS Safety Report 8543389-4 (Version None)
Quarter: 2012Q3

REPORT INFORMATION
  Report Type: 
  Country: None (occurrence: None)
  Receive Date: 20120727
  Receipt Date: 20120716
  Transmission Date: 20120928
  Serious: Yes (Hospitalization, Other)
  Sender: FDA-Public Use
  Company Number: US-BAYER-2012-072380

PATIENT
  Age: 32 Year
  Sex: Female
  Weight: 78 kg

DRUGS (8)
  1. EPIPEN [Concomitant]
     Dosage: UNK UNK, PRN
  2. IBUPROFEN [Concomitant]
     Dosage: UNK UNK, PRN
  3. PRILOSEC [Concomitant]
     Dosage: UNK
  4. YAZ [Suspect]
     Indication: MENORRHAGIA
  5. PERI-COLACE [Concomitant]
  6. IRON SULFATETHIAMIN COMPOUND TAB [Concomitant]
  7. YAZ [Suspect]
     Indication: MENSTRUATION IRREGULAR
  8. PROAIR HFA [Concomitant]
     Dosage: UNK

REACTIONS (2)
  - PULMONARY EMBOLISM [None]
  - CHOLELITHIASIS [None]
